FAERS Safety Report 6225655-0 (Version None)
Quarter: 2009Q2

REPORT INFORMATION
  Report Type: 
  Country: None (occurrence: None)
  Receive Date: 20090612
  Receipt Date: 20090515
  Transmission Date: 20091009
  Serious: No
  Sender: FDA-Public Use
  Company Number: US-ABBOTT-09P-163-0570652-00

PATIENT
  Sex: Female
  Weight: 62.652 kg

DRUGS (2)
  1. HUMIRA [Suspect]
     Indication: PSORIASIS
     Dosage: DAY
     Route: 058
     Dates: start: 20090426, end: 20090426
  2. HUMIRA [Suspect]
     Route: 058
     Dates: start: 20090429

REACTIONS (4)
  - HEADACHE [None]
  - PRURITUS [None]
  - PSORIASIS [None]
  - RHINORRHOEA [None]
